FAERS Safety Report 13731650 (Version 1)
Quarter: 2017Q3

REPORT INFORMATION
  Report Type: Spontaneous
  Country: AT (occurrence: AT)
  Receive Date: 20170707
  Receipt Date: 20170707
  Transmission Date: 20171127
  Serious: Yes (Life-Threatening, Hospitalization, Other)
  Sender: FDA-Public Use
  Company Number: AT-ELI_LILLY_AND_COMPANY-AT201707001915

PATIENT
  Age: 44 Year
  Sex: Male

DRUGS (18)
  1. DEXDOR [Suspect]
     Active Substance: DEXMEDETOMIDINE HYDROCHLORIDE
     Indication: AGITATION
     Dosage: UNK UNK, UNKNOWN
     Route: 065
     Dates: start: 20170314, end: 20170329
  2. TEMESTA                            /00273201/ [Concomitant]
     Active Substance: LORAZEPAM
     Dosage: 12.5 MG, UNKNOWN
     Dates: end: 20170601
  3. SEROQUEL [Concomitant]
     Active Substance: QUETIAPINE FUMARATE
     Indication: PRODUCT USED FOR UNKNOWN INDICATION
     Dosage: 300 MG, UNKNOWN
     Route: 065
     Dates: start: 20170313
  4. ZYPREXA [Suspect]
     Active Substance: OLANZAPINE
     Indication: PRODUCT USED FOR UNKNOWN INDICATION
     Dosage: 10 MG, UNKNOWN
     Route: 065
     Dates: start: 20170314, end: 20170314
  5. DEXDOR [Suspect]
     Active Substance: DEXMEDETOMIDINE HYDROCHLORIDE
     Dosage: UNK
     Dates: start: 20170406, end: 20170406
  6. QUILONORM                          /00033702/ [Suspect]
     Active Substance: LITHIUM CARBONATE
     Indication: PRODUCT USED FOR UNKNOWN INDICATION
     Dosage: 900 MG, UNKNOWN
     Route: 065
     Dates: end: 20170313
  7. QUILONORM                          /00033702/ [Suspect]
     Active Substance: LITHIUM CARBONATE
     Dosage: 1800 MG, DAILY
     Route: 065
     Dates: start: 20170316, end: 20170318
  8. SEROQUEL [Concomitant]
     Active Substance: QUETIAPINE FUMARATE
     Dosage: 900 MG, UNKNOWN
     Route: 065
     Dates: end: 20170315
  9. DEPAKINE                           /00228501/ [Concomitant]
     Active Substance: VALPROIC ACID
     Dosage: 2000 MG, UNKNOWN
     Dates: start: 20170324
  10. TEMESTA                            /00273201/ [Concomitant]
     Active Substance: LORAZEPAM
     Indication: PRODUCT USED FOR UNKNOWN INDICATION
     Dosage: 8 MG, UNKNOWN
     Route: 065
     Dates: start: 20170406
  11. ABILIFY [Concomitant]
     Active Substance: ARIPIPRAZOLE
     Indication: PRODUCT USED FOR UNKNOWN INDICATION
     Dosage: 10 MG, UNKNOWN
     Route: 065
     Dates: start: 20170314, end: 20170318
  12. ZYPREXA [Suspect]
     Active Substance: OLANZAPINE
     Dosage: 25 MG, UNKNOWN
     Route: 065
     Dates: start: 20170323, end: 20170407
  13. DEXDOR [Suspect]
     Active Substance: DEXMEDETOMIDINE HYDROCHLORIDE
     Dosage: UNK
     Dates: start: 20170422, end: 20170423
  14. QUILONORM                          /00033702/ [Suspect]
     Active Substance: LITHIUM CARBONATE
     Dosage: 1350 MG, UNKNOWN
     Route: 065
     Dates: start: 20170314, end: 20170315
  15. CISORDINOL                         /00876702/ [Concomitant]
     Active Substance: ZUCLOPENTHIXOL
     Dosage: 50 MG, UNKNOWN
     Route: 065
     Dates: end: 20170601
  16. DEPAKINE                           /00228501/ [Concomitant]
     Active Substance: VALPROIC ACID
     Indication: PRODUCT USED FOR UNKNOWN INDICATION
     Dosage: 400 MG, UNKNOWN
     Route: 065
     Dates: start: 20170317, end: 20170317
  17. ZYPREXA [Suspect]
     Active Substance: OLANZAPINE
     Dosage: 30 MG, UNKNOWN
     Route: 065
     Dates: start: 20170408
  18. CISORDINOL                         /00876702/ [Concomitant]
     Active Substance: ZUCLOPENTHIXOL
     Indication: PRODUCT USED FOR UNKNOWN INDICATION
     Dosage: 25 MG, UNKNOWN
     Route: 065
     Dates: start: 20170414

REACTIONS (7)
  - Myoglobinuria [Recovered/Resolved]
  - Nephrogenic diabetes insipidus [Recovered/Resolved]
  - Overdose [Unknown]
  - Pneumonia aspiration [Recovered/Resolved]
  - Agitation [Unknown]
  - Hyperthermia [Recovered/Resolved]
  - Hypernatraemia [Recovered/Resolved]

NARRATIVE: CASE EVENT DATE: 20170314
